FAERS Safety Report 20343194 (Version 2)
Quarter: 2022Q1

REPORT INFORMATION
  Report Type: Report from Study
  Country: BR (occurrence: BR)
  Receive Date: 20220117
  Receipt Date: 20220120
  Transmission Date: 20220424
  Serious: Yes (Other)
  Sender: FDA-Public Use
  Company Number: BR-ABBVIE-22K-020-4232440-00

PATIENT
  Age: 55 Year
  Sex: Female
  Weight: 70 kg

DRUGS (1)
  1. RINVOQ [Suspect]
     Active Substance: UPADACITINIB
     Indication: Rheumatoid arthritis
     Route: 048
     Dates: start: 20210920, end: 20220104

REACTIONS (33)
  - Renal injury [Recovered/Resolved]
  - Liver injury [Recovering/Resolving]
  - Nephrolithiasis [Unknown]
  - Malaise [Unknown]
  - Blood pressure increased [Recovered/Resolved]
  - Food craving [Unknown]
  - Blood glucose increased [Recovering/Resolving]
  - Bladder discomfort [Unknown]
  - Renal pain [Recovered/Resolved]
  - Urinary retention [Unknown]
  - Dysgeusia [Recovered/Resolved]
  - Taste disorder [Recovering/Resolving]
  - Blood pressure fluctuation [Recovered/Resolved]
  - Ageusia [Recovering/Resolving]
  - Hepatic pain [Unknown]
  - Nausea [Not Recovered/Not Resolved]
  - Abdominal pain [Not Recovered/Not Resolved]
  - C-reactive protein abnormal [Unknown]
  - Pyrexia [Unknown]
  - Feeling cold [Unknown]
  - Headache [Unknown]
  - Oropharyngeal pain [Unknown]
  - Pain [Unknown]
  - Viral infection [Recovering/Resolving]
  - Cough [Unknown]
  - Immunodeficiency [Unknown]
  - Genital herpes [Recovering/Resolving]
  - Asthenia [Unknown]
  - Glucose tolerance impaired [Recovering/Resolving]
  - Weight increased [Unknown]
  - Swelling [Unknown]
  - Weight decreased [Unknown]
  - Fluid retention [Unknown]

NARRATIVE: CASE EVENT DATE: 20220104
